FAERS Safety Report 4345855-4 (Version None)
Quarter: 2004Q2

REPORT INFORMATION
  Report Type: 
  Country: None (occurrence: None)
  Receive Date: 20040423
  Receipt Date: 20040423
  Transmission Date: 20050107
  Serious: Yes (Hospitalization)
  Sender: FDA-Public Use
  Company Number: None

PATIENT
  Sex: Male
  Weight: 50.349 kg

DRUGS (5)
  1. CARBOPLATIN [Suspect]
     Indication: NON-SMALL CELL LUNG CANCER
     Dosage: 550 MG
     Dates: start: 20040220, end: 20040401
  2. IRINOTECAN [Suspect]
     Indication: NON-SMALL CELL LUNG CANCER
     Dosage: 81 MG
     Dates: start: 20040220, end: 20040408
  3. THALIDOMIDE [Concomitant]
  4. MEGACE [Concomitant]
  5. EPOGEN [Concomitant]

REACTIONS (7)
  - CHEST PAIN [None]
  - DYSPNOEA [None]
  - EMPHYSEMA [None]
  - EXPIRATORY RESERVE VOLUME DECREASED [None]
  - FATIGUE [None]
  - LUNG DISORDER [None]
  - OXYGEN SATURATION DECREASED [None]
